FAERS Safety Report 9179818 (Version 1)
Quarter: 2013Q1

REPORT INFORMATION
  Report Type: Spontaneous
  Country: JP (occurrence: JP)
  Receive Date: 20130321
  Receipt Date: 20130321
  Transmission Date: 20140127
  Serious: Yes (Death, Hospitalization)
  Sender: FDA-Public Use
  Company Number: JP-ELI_LILLY_AND_COMPANY-JP201303004541

PATIENT
  Age: 89 Year
  Sex: Male

DRUGS (8)
  1. FORTEO [Suspect]
     Indication: OSTEOPOROSIS
     Dosage: UNK
     Route: 058
     Dates: start: 20130221
  2. ONEALFA [Concomitant]
     Indication: OSTEOPOROSIS
     Dosage: UNK
     Route: 048
     Dates: start: 20130221
  3. CALCIUM LACTATE [Concomitant]
     Indication: OSTEOPOROSIS
     Dosage: UNK
     Route: 048
     Dates: start: 20130221
  4. TAMBOCOR [Concomitant]
     Dosage: UNK
     Route: 048
  5. WARFARIN [Concomitant]
     Dosage: UNK
     Route: 048
  6. AMLODIN [Concomitant]
     Dosage: UNK
     Route: 048
  7. ULGUT [Concomitant]
     Dosage: UNK
     Route: 048
  8. LENDORMIN [Concomitant]
     Dosage: UNK
     Route: 048

REACTIONS (2)
  - Multi-organ failure [Fatal]
  - Hypercalcaemia [Fatal]
